FAERS Safety Report 7373250-2 (Version None)
Quarter: 2011Q1

REPORT INFORMATION
  Report Type: 
  Country: None (occurrence: None)
  Receive Date: 20110324
  Receipt Date: 20101223
  Transmission Date: 20110831
  Serious: No
  Sender: FDA-Public Use
  Company Number: US-BAYER-2011-024559

PATIENT
  Sex: Male
  Weight: 20 kg

DRUGS (1)
  1. ALEVE (CAPLET) [Suspect]

REACTIONS (1)
  - VOMITING [None]
